FAERS Safety Report 6356738-2 (Version None)
Quarter: 2009Q3

REPORT INFORMATION
  Report Type: 
  Country: None (occurrence: None)
  Receive Date: 20090915
  Receipt Date: 20090911
  Transmission Date: 20100115
  Serious: Yes (Other)
  Sender: FDA-Public Use
  Company Number: DE-BRISTOL-MYERS SQUIBB COMPANY-14695456

PATIENT
  Age: 53 Year
  Sex: Female
  Weight: 77 kg

DRUGS (1)
  1. IRBESARTAN [Suspect]
     Indication: PROPHYLAXIS
     Dosage: 1 DF = 1 TAB
     Route: 048
     Dates: start: 20090703, end: 20090701

REACTIONS (9)
  - BLOOD PRESSURE DECREASED [None]
  - CYANOSIS [None]
  - DYSPNOEA [None]
  - HEADACHE [None]
  - LOCALISED OEDEMA [None]
  - MUSCLE SPASMS [None]
  - SWOLLEN TONGUE [None]
  - TONGUE BLISTERING [None]
  - WEIGHT DECREASED [None]
